FAERS Safety Report 5242148-8 (Version None)
Quarter: 2007Q1

REPORT INFORMATION
  Report Type: 
  Country: None (occurrence: None)
  Receive Date: 20070213
  Receipt Date: 20070130
  Transmission Date: 20070707
  Serious: Yes (Other)
  Sender: FDA-Public Use
  Company Number: DISUS-07-0129

PATIENT

DRUGS (1)
  1. PROPOFOL [Suspect]
     Indication: CONVULSION
     Dates: start: 20070101

REACTIONS (2)
  - PROPOFOL INFUSION SYNDROME [None]
  - RHABDOMYOLYSIS [None]
